FAERS Safety Report 7542980-1 (Version None)
Quarter: 2011Q2

REPORT INFORMATION
  Report Type: 
  Country: None (occurrence: None)
  Receive Date: 20110613
  Receipt Date: 20110601
  Transmission Date: 20111010
  Serious: Yes (Other)
  Sender: FDA-Public Use
  Company Number: PHHY2011BR11820

PATIENT
  Sex: Male

DRUGS (1)
  1. DIOVAN HCT [Suspect]
     Dosage: 160MG VALSAR AND 12.5MG HYDRO

REACTIONS (2)
  - BLOOD PRESSURE INCREASED [None]
  - MALAISE [None]
